FAERS Safety Report 8197602-6 (Version None)
Quarter: 2012Q1

REPORT INFORMATION
  Report Type: 
  Country: None (occurrence: None)
  Receive Date: 20120309
  Receipt Date: 20120301
  Transmission Date: 20120608
  Serious: Yes (Disabling, Other)
  Sender: FDA-Public Use
  Company Number: BR-SANOFI-AVENTIS-2012SA013513

PATIENT
  Sex: Male

DRUGS (5)
  1. ZOLPIDEM [Suspect]
     Indication: INSOMNIA
     Dosage: ^3 YEARS AGO^.
     Route: 048
  2. ZOLPIDEM TARTRATE [Concomitant]
     Dosage: ^3 PACKAGES IN A WEEK-END^.
     Route: 065
  3. ZOLPIDEM [Suspect]
     Dosage: ^SOMETIMES 10 TABLETS AT ONCE^/ ^3 PACKAGES IN A WEEK-END^ / ^4 PACKAGES IN 2 DAYS^
     Route: 048
     Dates: end: 20120226
  4. PAROXETINE [Concomitant]
     Indication: SOCIAL PHOBIA
     Route: 065
  5. ZOLPIDEM [Suspect]
     Route: 048

REACTIONS (8)
  - DRUG DEPENDENCE [None]
  - INTENTIONAL OVERDOSE [None]
  - HEAD INJURY [None]
  - AMNESIA [None]
  - SOMNAMBULISM [None]
  - FALL [None]
  - ROAD TRAFFIC ACCIDENT [None]
  - DRUG ABUSE [None]
